FAERS Safety Report 17044880 (Version 1)
Quarter: 2019Q4

REPORT INFORMATION
  Report Type: Spontaneous
  Country: US (occurrence: US)
  Receive Date: 20191118
  Receipt Date: 20191118
  Transmission Date: 20200122
  Serious: No
  Sender: FDA-Public Use
  Company Number: US-IBSA PHARMA-TIR-2019-0656

PATIENT
  Age: 54 Year
  Sex: Female

DRUGS (6)
  1. TIROSINT [Suspect]
     Active Substance: LEVOTHYROXINE SODIUM
     Indication: RADIOACTIVE IODINE THERAPY
     Dosage: 50MCG MONDAY THROUGH FRIDAY AND 100MCG (TWO 50MCG CAPSULES) ON SATURDAY AND SUNDAY
     Route: 048
     Dates: start: 201907, end: 20190729
  2. VITAMIN D [Concomitant]
     Active Substance: VITAMIN D NOS
     Indication: PRODUCT USED FOR UNKNOWN INDICATION
  3. MILK OF MAGNESIA [Concomitant]
     Active Substance: MAGNESIUM HYDROXIDE
     Indication: PRODUCT USED FOR UNKNOWN INDICATION
  4. FLAX SEED [Concomitant]
     Active Substance: FLAX SEED
     Indication: PRODUCT USED FOR UNKNOWN INDICATION
  5. TIROSINT [Suspect]
     Active Substance: LEVOTHYROXINE SODIUM
     Indication: BASEDOW^S DISEASE
     Dosage: 50MCG DAILY
     Route: 048
     Dates: start: 201806
  6. CALCIUM [Concomitant]
     Active Substance: CALCIUM
     Indication: PRODUCT USED FOR UNKNOWN INDICATION

REACTIONS (8)
  - Abdominal discomfort [Unknown]
  - Bone pain [Unknown]
  - Feeling abnormal [Unknown]
  - Blood thyroid stimulating hormone increased [Unknown]
  - Pruritus [Unknown]
  - Paraesthesia [Unknown]
  - Abdominal distension [Unknown]
  - Arthralgia [Unknown]

NARRATIVE: CASE EVENT DATE: 201903
